FAERS Safety Report 7867967-0 (Version None)
Quarter: 2011Q4

REPORT INFORMATION
  Report Type: 
  Country: None (occurrence: None)
  Receive Date: 20111024
  Receipt Date: 20111006
  Transmission Date: 20120403
  Serious: Yes (Hospitalization, Other)
  Sender: FDA-Public Use
  Company Number: DSA_47893_2011

PATIENT
  Age: 75 Year
  Sex: Male

DRUGS (5)
  1. SINTROM [Concomitant]
  2. ENALAPRIL MALEATE [Suspect]
     Indication: PRODUCT USED FOR UNKNOWN INDICATION
     Dosage: (DF ORAL)
     Route: 048
  3. ATORVASTATIN CALCIUM [Concomitant]
  4. TAMSULOSIN HYDROCHLORIDE [Concomitant]
  5. OMEPRAZOLE [Concomitant]

REACTIONS (29)
  - HYPOGLYCAEMIA [None]
  - RENAL FAILURE [None]
  - PYREXIA [None]
  - OLIGURIA [None]
  - HAEMODIALYSIS [None]
  - SEPTIC SHOCK [None]
  - THROMBOCYTOPENIA [None]
  - KLEBSIELLA TEST POSITIVE [None]
  - STAPHYLOCOCCUS TEST POSITIVE [None]
  - ANAEMIA [None]
  - TACHYPNOEA [None]
  - ANURIA [None]
  - LIVER DISORDER [None]
  - CARDIAC DISORDER [None]
  - DRY GANGRENE [None]
  - COAGULOPATHY [None]
  - LACTIC ACIDOSIS [None]
  - NERVOUS SYSTEM DISORDER [None]
  - PARESIS [None]
  - DYSPNOEA [None]
  - MULTI-ORGAN DISORDER [None]
  - BLOOD DISORDER [None]
  - ATRIAL FIBRILLATION [None]
  - DISORIENTATION [None]
  - HYPOTENSION [None]
  - HAEMODYNAMIC INSTABILITY [None]
  - ACUTE RESPIRATORY FAILURE [None]
  - ENTEROCOCCUS TEST POSITIVE [None]
  - MYOPATHY [None]
